FAERS Safety Report 7987651-2 (Version None)
Quarter: 2011Q4

REPORT INFORMATION
  Report Type: 
  Country: None (occurrence: None)
  Receive Date: 20111216
  Receipt Date: 20111212
  Transmission Date: 20120403
  Serious: Yes (Hospitalization, Other)
  Sender: FDA-Public Use
  Company Number: PHHY2011US108603

PATIENT
  Sex: Female

DRUGS (1)
  1. GILENYA [Suspect]
     Indication: MULTIPLE SCLEROSIS
     Dosage: UNK UKN, UNK
     Dates: start: 20101229

REACTIONS (7)
  - BRAIN OEDEMA [None]
  - BRAIN HERNIATION [None]
  - MULTIPLE SCLEROSIS RELAPSE [None]
  - DEMYELINATION [None]
  - INFLUENZA [None]
  - CONVULSION [None]
  - SCOTOMA [None]
